FAERS Safety Report 5205501-4 (Version None)
Quarter: 2006Q4

REPORT INFORMATION
  Report Type: 
  Country: None (occurrence: None)
  Receive Date: 20061027
  Receipt Date: 20050906
  Transmission Date: 20070319
  Serious: Yes (Other)
  Sender: FDA-Public Use
  Company Number: HQWYE386412SEP05

PATIENT
  Age: 66 Year
  Sex: Female
  Weight: 90.8 kg

DRUGS (3)
  1. PREMARIN [Suspect]
     Indication: HORMONE REPLACEMENT THERAPY
     Dosage: SEE IMAGE
     Route: 048
     Dates: start: 19980101, end: 20050601
  2. PREMARIN [Suspect]
     Indication: HORMONE REPLACEMENT THERAPY
     Dosage: SEE IMAGE
     Route: 048
     Dates: start: 20050601, end: 20050830
  3. COZAAR [Concomitant]

REACTIONS (3)
  - CARDIAC FLUTTER [None]
  - HOT FLUSH [None]
  - NERVOUSNESS [None]
